FAERS Safety Report 11057059 (Version 1)
Quarter: 2015Q2

REPORT INFORMATION
  Report Type: Spontaneous
  Country: US (occurrence: US)
  Receive Date: 20150422
  Receipt Date: 20150422
  Transmission Date: 20150821
  Serious: No
  Sender: FDA-Public Use
  Company Number: US-ELI_LILLY_AND_COMPANY-US201504003494

PATIENT
  Sex: Female

DRUGS (9)
  1. BAYER ASPIRIN [Concomitant]
     Active Substance: ASPIRIN
  2. ERGOCALCIFEROL. [Concomitant]
     Active Substance: ERGOCALCIFEROL
  3. ATORVASTATIN [Concomitant]
     Active Substance: ATORVASTATIN
  4. ISOSORBIDE [Concomitant]
     Active Substance: ISOSORBIDE
  5. FORTEO [Suspect]
     Active Substance: TERIPARATIDE
     Indication: OSTEOPOROSIS
     Dosage: UNK
     Route: 065
     Dates: start: 201407
  6. DULOXETINE [Concomitant]
     Active Substance: DULOXETINE
  7. PREDNISONE. [Concomitant]
     Active Substance: PREDNISONE
  8. PROAIR HFA [Concomitant]
     Active Substance: ALBUTEROL SULFATE
  9. DILTIASYN [Concomitant]

REACTIONS (2)
  - Tremor [Unknown]
  - Fall [Unknown]
